FAERS Safety Report 10867068 (Version 5)
Quarter: 2015Q4

REPORT INFORMATION
  Report Type: Spontaneous
  Country: FR (occurrence: FR)
  Receive Date: 20150225
  Receipt Date: 20151211
  Transmission Date: 20160304
  Serious: Yes (Life-Threatening, Hospitalization)
  Sender: FDA-Public Use
  Company Number: FR-JNJFOC-20150207794

PATIENT
  Age: 55 Year
  Sex: Female
  Weight: 71 kg

DRUGS (11)
  1. CAELYX [Suspect]
     Active Substance: DOXORUBICIN HYDROCHLORIDE
     Indication: MYCOSIS FUNGOIDES
     Dosage: DAY 1 COURSE 1??38 MG / 250 ML AT 50 ML/H
     Route: 042
     Dates: start: 20150210, end: 20150210
  2. INTERFERON [Concomitant]
     Active Substance: INTERFERON
     Route: 065
  3. GLYCEROL W/PARAFFIN, LIQUID/WHITE SOFT PARAFF [Concomitant]
     Route: 065
  4. POLARAMIN [Concomitant]
     Active Substance: DEXCHLORPHENIRAMINE MALEATE
     Indication: PREMEDICATION
     Route: 042
     Dates: start: 20150210, end: 20150210
  5. CAELYX [Suspect]
     Active Substance: DOXORUBICIN HYDROCHLORIDE
     Indication: MYCOSIS FUNGOIDES
     Dosage: DAY 1 COURSE 1??38 MG / 250 ML AT 50 ML/H
     Route: 042
     Dates: start: 20150210, end: 20150210
  6. GEMZAR [Concomitant]
     Active Substance: GEMCITABINE HYDROCHLORIDE
     Route: 065
  7. METHYLPREDNISOLONE. [Concomitant]
     Active Substance: METHYLPREDNISOLONE
     Indication: PREMEDICATION
     Route: 042
     Dates: start: 20150210
  8. DERMOVATE [Concomitant]
     Active Substance: CLOBETASOL
     Route: 065
  9. ZOPHREN [Concomitant]
     Active Substance: ONDANSETRON
     Indication: PREMEDICATION
     Route: 042
     Dates: start: 20150210
  10. STABLON [Concomitant]
     Active Substance: TIANEPTINE
     Route: 048
  11. INIPOMP [Concomitant]
     Active Substance: PANTOPRAZOLE SODIUM
     Route: 048

REACTIONS (7)
  - Chest discomfort [Recovered/Resolved]
  - Feeling hot [Recovered/Resolved with Sequelae]
  - Infusion related reaction [Recovered/Resolved]
  - Product use issue [Unknown]
  - Erythema [Recovered/Resolved]
  - Back pain [Recovered/Resolved]
  - Anaphylactic reaction [Recovered/Resolved]

NARRATIVE: CASE EVENT DATE: 20150210
